FAERS Safety Report 5853739-5 (Version None)
Quarter: 2008Q3

REPORT INFORMATION
  Report Type: 
  Country: None (occurrence: None)
  Receive Date: 20080822
  Receipt Date: 20080814
  Transmission Date: 20090109
  Serious: Yes (Other)
  Sender: FDA-Public Use
  Company Number: US-AMGEN-QUU298354

PATIENT
  Sex: Male

DRUGS (3)
  1. ENBREL [Suspect]
     Indication: RHEUMATOID ARTHRITIS
     Route: 058
  2. METHOTREXATE SODIUM [Concomitant]
     Route: 048
  3. SULFASALAZINE [Concomitant]

REACTIONS (2)
  - CAROTID ARTERY OCCLUSION [None]
  - INGUINAL HERNIA [None]
